FAERS Safety Report 9737194 (Version 1)
Quarter: 2013Q4

REPORT INFORMATION
  Report Type: Report from Study
  Country: JP (occurrence: JP)
  Receive Date: 20131206
  Receipt Date: 20131206
  Transmission Date: 20140711
  Serious: Yes (Death)
  Sender: FDA-Public Use
  Company Number: JP-TAKEDA-2013TJP003439

PATIENT
  Age: 66 Year
  Sex: Male
  Weight: 48 kg

DRUGS (5)
  1. LANSOPRAZOLE [Suspect]
     Indication: PROPHYLAXIS AGAINST GASTROINTESTINAL ULCER
     Dosage: 15 MG, QD
     Route: 048
     Dates: start: 20120825, end: 20130816
  2. BAYASPIRIN [Concomitant]
     Indication: THROMBOSIS PROPHYLAXIS
     Dosage: 100 MG, 1DAYS
     Route: 048
  3. DIOVAN [Concomitant]
     Dosage: 80 MG, 1DAYS
     Route: 048
  4. CRESTOR [Concomitant]
     Indication: DYSLIPIDAEMIA
     Dosage: 2.5 MG, 1 DAYS
     Route: 048
  5. PLAVIX [Concomitant]
     Dosage: 75 MG, 1 DAYS
     Route: 048

REACTIONS (1)
  - Alcoholic pancreatitis [Fatal]
